FAERS Safety Report 20560544 (Version 10)
Quarter: 2024Q3

REPORT INFORMATION
  Report Type: Spontaneous
  Country: US (occurrence: US)
  Receive Date: 20220307
  Receipt Date: 20240924
  Transmission Date: 20241016
  Serious: Yes (Other)
  Sender: PFIZER
  Company Number: US-PFIZER INC-202100999984

PATIENT
  Age: 77 Year
  Sex: Female

DRUGS (10)
  1. XELJANZ XR [Suspect]
     Active Substance: TOFACITINIB CITRATE
     Indication: Rheumatoid arthritis
     Dosage: 11 MG, DAILY
     Route: 048
     Dates: start: 202101
  2. XELJANZ XR [Suspect]
     Active Substance: TOFACITINIB CITRATE
     Dosage: 11 MG, DAILY
     Route: 048
     Dates: start: 202107, end: 20210801
  3. XELJANZ XR [Suspect]
     Active Substance: TOFACITINIB CITRATE
     Dosage: 11 MG, DAILY
     Route: 048
     Dates: start: 2021, end: 202302
  4. XELJANZ XR [Suspect]
     Active Substance: TOFACITINIB CITRATE
     Dosage: 11 MG, DAILY
     Route: 048
     Dates: start: 202303, end: 202310
  5. XELJANZ XR [Suspect]
     Active Substance: TOFACITINIB CITRATE
     Dosage: 11 MG, DAILY
     Route: 048
     Dates: start: 20231201, end: 202401
  6. XELJANZ XR [Suspect]
     Active Substance: TOFACITINIB CITRATE
     Dosage: UNK
  7. XELJANZ XR [Suspect]
     Active Substance: TOFACITINIB CITRATE
     Dosage: 11 MG, DAILY
     Route: 048
     Dates: start: 2024, end: 202404
  8. XELJANZ XR [Suspect]
     Active Substance: TOFACITINIB CITRATE
     Dosage: 11 MG, DAILY
     Route: 048
     Dates: start: 2024, end: 2024
  9. XELJANZ XR [Suspect]
     Active Substance: TOFACITINIB CITRATE
     Dosage: 11 MG, DAILY
     Route: 048
     Dates: start: 2024
  10. PREDNISONE [Concomitant]
     Active Substance: PREDNISONE

REACTIONS (18)
  - Neuropathy peripheral [Unknown]
  - Rheumatoid arthritis [Unknown]
  - Pneumonia [Recovering/Resolving]
  - Pertussis [Unknown]
  - Urinary tract infection [Unknown]
  - Drug ineffective [Unknown]
  - Chills [Unknown]
  - Headache [Unknown]
  - Abdominal pain [Unknown]
  - Pyrexia [Unknown]
  - Procedural pain [Recovering/Resolving]
  - Condition aggravated [Unknown]
  - Back pain [Recovering/Resolving]
  - Pain in extremity [Unknown]
  - Bronchitis [Recovering/Resolving]
  - Arthralgia [Recovering/Resolving]
  - Incontinence [Unknown]
  - General physical health deterioration [Unknown]

NARRATIVE: CASE EVENT DATE: 20210731
